FAERS Safety Report 16889178 (Version 2)
Quarter: 2019Q4

REPORT INFORMATION
  Report Type: Spontaneous
  Country: JP (occurrence: JP)
  Receive Date: 20191007
  Receipt Date: 20191115
  Transmission Date: 20200122
  Serious: Yes (Hospitalization)
  Sender: FDA-Public Use
  Company Number: JP-TEVA-2019-JP-1116023

PATIENT
  Age: 9 Decade
  Sex: Female

DRUGS (8)
  1. AZILECT [Suspect]
     Active Substance: RASAGILINE MESYLATE
     Dosage: 1 MILLIGRAM DAILY;
     Route: 048
     Dates: start: 20191004
  2. ENTACAPONE. [Concomitant]
     Active Substance: ENTACAPONE
     Route: 065
  3. NEODOPASTON [Concomitant]
     Active Substance: CARBIDOPA\LEVODOPA
     Route: 065
  4. AZILECT [Suspect]
     Active Substance: RASAGILINE MESYLATE
     Indication: PARKINSON^S DISEASE
     Dosage: 1 MILLIGRAM DAILY;
     Route: 048
     Dates: end: 20190918
  5. TRERIEF [Concomitant]
     Active Substance: ZONISAMIDE
     Route: 065
  6. AZILECT [Suspect]
     Active Substance: RASAGILINE MESYLATE
     Dosage: .5 MILLIGRAM DAILY;
     Route: 048
     Dates: start: 20190924
  7. PRAMIPEXOLE HYDROCHLORIDE MONOHYDRATE [Concomitant]
     Active Substance: PRAMIPEXOLE
     Route: 065
  8. NOURIAST [Concomitant]
     Active Substance: ISTRADEFYLLINE
     Route: 065

REACTIONS (3)
  - Fracture [Unknown]
  - Hallucination [Recovered/Resolved]
  - Fall [Unknown]

NARRATIVE: CASE EVENT DATE: 201909
